FAERS Safety Report 6087475-X (Version None)
Quarter: 2009Q1

REPORT INFORMATION
  Report Type: 
  Country: None (occurrence: None)
  Receive Date: 20090218
  Receipt Date: 20090218
  Transmission Date: 20090719
  Serious: Yes (Other)
  Sender: FDA-Public Use
  Company Number: None

PATIENT
  Age: 29 Year
  Sex: Female
  Weight: 72.5755 kg

DRUGS (1)
  1. DEPO-PROVERA [Suspect]
     Indication: CONTRACEPTION
     Dosage: 3 MONTH SHOT EVERY 3 MONTHS ID
     Route: 026
     Dates: start: 20080315, end: 20080715

REACTIONS (6)
  - ANGER [None]
  - FEAR [None]
  - INSOMNIA [None]
  - LIBIDO INCREASED [None]
  - PERSONALITY CHANGE [None]
  - RESTLESSNESS [None]
